FAERS Safety Report 8315388-9 (Version None)
Quarter: 2012Q2

REPORT INFORMATION
  Report Type: 
  Country: None (occurrence: None)
  Receive Date: 20120426
  Receipt Date: 20120418
  Transmission Date: 20120825
  Serious: Yes (Other)
  Sender: FDA-Public Use
  Company Number: US-ROXANE LABORATORIES, INC.-2012-RO-01090RO

PATIENT
  Sex: Female

DRUGS (3)
  1. DEXAMETHASONE [Suspect]
     Indication: MULTIPLE MYELOMA
     Dosage: 20 MG
     Route: 048
     Dates: start: 20120327
  2. VELCADE [Suspect]
     Indication: MULTIPLE MYELOMA
     Route: 042
     Dates: start: 20120327, end: 20120403
  3. MDX-1338 [Suspect]
     Indication: MULTIPLE MYELOMA
     Route: 042
     Dates: start: 20120313, end: 20120403

REACTIONS (2)
  - LIPASE INCREASED [None]
  - AMYLASE INCREASED [None]
